FAERS Safety Report 6491319-1 (Version None)
Quarter: 2009Q4

REPORT INFORMATION
  Report Type: 
  Country: None (occurrence: None)
  Receive Date: 20091211
  Receipt Date: 20091209
  Transmission Date: 20100525
  Serious: Yes (Death)
  Sender: FDA-Public Use
  Company Number: PHHY2009JP54403

PATIENT
  Age: 85 Year
  Sex: Female

DRUGS (2)
  1. METOPIRONE [Suspect]
     Indication: ACTH-PRODUCING PITUITARY TUMOUR
     Dosage: 500 MG PER DAY
     Route: 048
     Dates: start: 20090626
  2. SULFAMETHOXAZOLE AND TRIMETHOPRIM [Concomitant]
     Indication: INFECTION PROPHYLAXIS
     Dosage: 4 DF
     Route: 048

REACTIONS (1)
  - PNEUMOCYSTIS JIROVECI PNEUMONIA [None]
